FAERS Safety Report 6523691-8 (Version None)
Quarter: 2009Q4

REPORT INFORMATION
  Report Type: 
  Country: None (occurrence: None)
  Receive Date: 20091231
  Receipt Date: 20091221
  Transmission Date: 20100525
  Serious: Yes (Other)
  Sender: FDA-Public Use
  Company Number: PHHY2009CA57307

PATIENT
  Age: 53 Year
  Sex: Female

DRUGS (1)
  1. SANDOSTATIN LAR [Suspect]
     Indication: HEPATIC NEOPLASM MALIGNANT
     Dosage: 20 MG, QMO
     Route: 030

REACTIONS (8)
  - ABDOMINAL DISCOMFORT [None]
  - CHEST PAIN [None]
  - DISEASE PROGRESSION [None]
  - DUODENAL ULCER HAEMORRHAGE [None]
  - HEPATIC CANCER METASTATIC [None]
  - MELAENA [None]
  - PORTAL VEIN THROMBOSIS [None]
  - SMALL INTESTINE CARCINOMA [None]
